FAERS Safety Report 6303907-3 (Version None)
Quarter: 2009Q3

REPORT INFORMATION
  Report Type: 
  Country: None (occurrence: None)
  Receive Date: 20090810
  Receipt Date: 20090810
  Transmission Date: 20100115
  Serious: No
  Sender: FDA-Public Use
  Company Number: None

PATIENT
  Sex: Female
  Weight: 76.2043 kg

DRUGS (1)
  1. MELOXICAM [Suspect]
     Indication: ARTHRALGIA
     Dosage: 1 PILL 1X DAY ORALLY

REACTIONS (5)
  - DRUG EFFECT INCREASED [None]
  - FEELING ABNORMAL [None]
  - HEART RATE INCREASED [None]
  - HYPERTENSION [None]
  - PRURITUS GENERALISED [None]
